FAERS Safety Report 5484834-0 (Version None)
Quarter: 2007Q4

REPORT INFORMATION
  Report Type: 
  Country: None (occurrence: None)
  Receive Date: 20071010
  Receipt Date: 20070928
  Transmission Date: 20080405
  Serious: Yes (Other)
  Sender: FDA-Public Use
  Company Number: GXKR2007GB08428

PATIENT
  Age: 72 Year
  Sex: Female

DRUGS (2)
  1. ASPIRIN [Suspect]
     Dosage: 75 MG, QD,
  2. TILDIEM(DILTIAZEM HYDROCHLOROTHIAZIDE) UNKNOWN [Suspect]
     Indication: ATRIAL FIBRILLATION
     Dosage: 240 MG, QD, ORAL
     Route: 048

REACTIONS (2)
  - ATRIAL FIBRILLATION [None]
  - INTENTIONAL DRUG MISUSE [None]
